FAERS Safety Report 16277433 (Version 6)
Quarter: 2020Q2

REPORT INFORMATION
  Report Type: Spontaneous
  Country: FR (occurrence: FR)
  Receive Date: 20190506
  Receipt Date: 20200427
  Transmission Date: 20200713
  Serious: Yes (Hospitalization, Other)
  Sender: FDA-Public Use
  Company Number: PHHY2019FR100911

PATIENT
  Age: 68 Year
  Sex: Female
  Weight: 83 kg

DRUGS (47)
  1. ACITRETIN. [Suspect]
     Active Substance: ACITRETIN
     Dosage: 10 MG, QD
     Route: 048
     Dates: start: 20170728, end: 20180126
  2. STELARA [Suspect]
     Active Substance: USTEKINUMAB
     Dosage: 90 MG, UNK (EVERY 12 WEEK)
     Route: 058
     Dates: start: 20170828, end: 20171027
  3. LOCAPRED [Concomitant]
     Active Substance: DESONIDE
     Indication: PRODUCT USED FOR UNKNOWN INDICATION
     Dosage: UNK
     Route: 065
  4. GLYCEROTONE [Concomitant]
     Dosage: UNK
     Route: 065
  5. GLYCEROTONE [Concomitant]
     Dosage: UNK
     Route: 065
     Dates: start: 20180323
  6. STRESAM [Concomitant]
     Active Substance: ETIFOXINE
     Indication: PRODUCT USED FOR UNKNOWN INDICATION
     Dosage: UNK
     Route: 065
  7. REMICADE [Suspect]
     Active Substance: INFLIXIMAB
     Dosage: 420 MG, UNK (EVERY 7 WEEK)
     Route: 042
     Dates: start: 20151126
  8. ACITRETIN. [Suspect]
     Active Substance: ACITRETIN
     Dosage: 25 MG, QD
     Route: 048
     Dates: start: 20160704, end: 20160809
  9. KARDEGIC [Concomitant]
     Active Substance: ASPIRIN DL-LYSINE
     Dosage: UNK
     Route: 065
  10. BETNEVAL [Concomitant]
     Active Substance: BETAMETHASONE VALERATE
     Dosage: UNK
     Route: 065
     Dates: start: 20150408
  11. NERISONE [Concomitant]
     Active Substance: DIFLUCORTOLONE VALERATE
     Indication: PRODUCT USED FOR UNKNOWN INDICATION
     Dosage: UNK
     Route: 065
     Dates: start: 20180323, end: 20180423
  12. DERMOVAL [Concomitant]
     Indication: PRODUCT USED FOR UNKNOWN INDICATION
     Dosage: UNK
     Route: 065
  13. KARDEGIC [Concomitant]
     Active Substance: ASPIRIN DL-LYSINE
     Indication: PRODUCT USED FOR UNKNOWN INDICATION
     Dosage: UNK
     Route: 065
  14. COSENTYX [Suspect]
     Active Substance: SECUKINUMAB
     Dosage: 300 MG, Q4W
     Route: 058
     Dates: start: 20161007, end: 201701
  15. REMICADE [Suspect]
     Active Substance: INFLIXIMAB
     Dosage: 415 MG, UNK (EVERY 8 WEEK)
     Route: 042
     Dates: start: 20160202, end: 20160325
  16. HUMIRA [Suspect]
     Active Substance: ADALIMUMAB
     Indication: PRODUCT USED FOR UNKNOWN INDICATION
     Dosage: 80 MG, QW
     Route: 058
     Dates: start: 20170224, end: 20170303
  17. HUMIRA [Suspect]
     Active Substance: ADALIMUMAB
     Dosage: 40 MG, Q2W
     Route: 058
     Dates: start: 20170303, end: 20170602
  18. ACITRETIN. [Suspect]
     Active Substance: ACITRETIN
     Dosage: 20 MG, QD
     Route: 048
  19. BETNEVAL [Concomitant]
     Active Substance: BETAMETHASONE VALERATE
     Indication: PRODUCT USED FOR UNKNOWN INDICATION
     Dosage: UNK
     Route: 065
  20. LOCAPRED [Concomitant]
     Active Substance: DESONIDE
     Dosage: UNK
     Route: 065
     Dates: start: 20180323
  21. DERMOVAL [Concomitant]
     Dosage: UNK
     Route: 065
     Dates: start: 20150408
  22. HUMIRA [Suspect]
     Active Substance: ADALIMUMAB
     Dosage: 40 MG, QW
     Route: 058
     Dates: start: 20170602, end: 20170728
  23. STELARA [Suspect]
     Active Substance: USTEKINUMAB
     Indication: PRODUCT USED FOR UNKNOWN INDICATION
     Dosage: 90 MG, UNK (EVERY 8 WEEKS)
     Route: 058
     Dates: start: 20170728, end: 20170828
  24. STELARA [Suspect]
     Active Substance: USTEKINUMAB
     Dosage: 90 MG, UNK (EVERY 8 WEEK)
     Route: 058
     Dates: start: 20180126, end: 201802
  25. FLECAINE [Concomitant]
     Active Substance: FLECAINIDE
     Dosage: UNK
     Route: 065
     Dates: start: 20170728
  26. NOROXINE [Concomitant]
     Active Substance: NORFLOXACIN
     Indication: PRODUCT USED FOR UNKNOWN INDICATION
     Dosage: UNK
     Route: 065
     Dates: start: 20160114, end: 20160201
  27. DAIVOBET [Concomitant]
     Active Substance: BETAMETHASONE DIPROPIONATE\CALCIPOTRIENE
     Dosage: UNK
     Route: 065
     Dates: start: 20151126
  28. CICLOSPORIN [Suspect]
     Active Substance: CYCLOSPORINE
     Indication: PRODUCT USED FOR UNKNOWN INDICATION
     Dosage: 15 MG, QW
     Route: 058
     Dates: start: 20180323
  29. REMICADE [Suspect]
     Active Substance: INFLIXIMAB
     Indication: PSORIASIS
     Dosage: 420 MG, UNK (EVERY 8 WEEK)
     Route: 042
     Dates: start: 20150526, end: 20151126
  30. REMICADE [Suspect]
     Active Substance: INFLIXIMAB
     Dosage: 400 MG, UNK (EVERY 8 WEEKS)
     Route: 042
     Dates: start: 20160704, end: 20160704
  31. REMICADE [Suspect]
     Active Substance: INFLIXIMAB
     Dosage: 420 MG, UNK
     Route: 042
  32. FLECAINE [Concomitant]
     Active Substance: FLECAINIDE
     Indication: PRODUCT USED FOR UNKNOWN INDICATION
     Dosage: UNK
     Route: 065
  33. NOROXINE [Concomitant]
     Active Substance: NORFLOXACIN
     Indication: PRODUCT USED FOR UNKNOWN INDICATION
     Dosage: UNK
     Route: 065
  34. CERAT INALTERABLE [Concomitant]
     Indication: PRODUCT USED FOR UNKNOWN INDICATION
     Dosage: UNK
     Route: 065
  35. CERAT INALTERABLE [Concomitant]
     Route: 065
     Dates: start: 20180717
  36. STRESAM [Concomitant]
     Active Substance: ETIFOXINE
     Dosage: UNK
     Route: 065
     Dates: start: 20180123
  37. DERMOVAL [Concomitant]
     Indication: PRODUCT USED FOR UNKNOWN INDICATION
     Dosage: UNK
     Route: 065
  38. COSENTYX [Suspect]
     Active Substance: SECUKINUMAB
     Indication: PRODUCT USED FOR UNKNOWN INDICATION
     Dosage: 300 MG, QW
     Route: 058
     Dates: start: 20160830, end: 20161007
  39. ACITRETIN. [Suspect]
     Active Substance: ACITRETIN
     Indication: PRODUCT USED FOR UNKNOWN INDICATION
     Dosage: UNK
     Route: 048
  40. ACITRETIN. [Suspect]
     Active Substance: ACITRETIN
     Dosage: 20 MG, QD
     Route: 048
     Dates: start: 20180126, end: 20180323
  41. STELARA [Suspect]
     Active Substance: USTEKINUMAB
     Dosage: 90 MG, UNK (EVERY 10 WEEKS)
     Route: 058
     Dates: start: 20171027, end: 20180126
  42. GLYCEROTONE [Concomitant]
     Indication: PRODUCT USED FOR UNKNOWN INDICATION
     Dosage: UNK
     Route: 065
  43. KARDEGIC [Concomitant]
     Active Substance: ASPIRIN DL-LYSINE
     Dosage: UNK
     Route: 065
     Dates: start: 20130620
  44. BETNEVAL [Concomitant]
     Active Substance: BETAMETHASONE VALERATE
     Indication: PRODUCT USED FOR UNKNOWN INDICATION
     Dosage: UNK
     Route: 065
  45. DAIVOBET [Concomitant]
     Active Substance: BETAMETHASONE DIPROPIONATE\CALCIPOTRIENE
     Indication: PRODUCT USED FOR UNKNOWN INDICATION
     Dosage: UNK
     Route: 065
  46. DAIVOBET [Concomitant]
     Active Substance: BETAMETHASONE DIPROPIONATE\CALCIPOTRIENE
     Dosage: UNK
     Route: 065
  47. DERMOVAL [Concomitant]
     Dosage: UNK
     Route: 065
     Dates: start: 20180717

REACTIONS (7)
  - Cutaneous T-cell lymphoma [Not Recovered/Not Resolved]
  - Urinary tract infection [Recovered/Resolved]
  - Psoriasis [Not Recovered/Not Resolved]
  - Product use issue [Unknown]
  - Off label use [Unknown]
  - Haemorrhoids [Recovered/Resolved]
  - Drug ineffective [Unknown]

NARRATIVE: CASE EVENT DATE: 20150529
